FAERS Safety Report 13181618 (Version 1)
Quarter: 2017Q1

REPORT INFORMATION
  Report Type: Spontaneous
  Country: US (occurrence: US)
  Receive Date: 20170202
  Receipt Date: 20170202
  Transmission Date: 20170428
  Serious: Yes (Hospitalization)
  Sender: FDA-Public Use
  Company Number: US-SA-2016SA114340

PATIENT
  Age: 62 Year
  Sex: Male

DRUGS (3)
  1. LEVEMIR [Concomitant]
     Active Substance: INSULIN DETEMIR
  2. LANTUS [Suspect]
     Active Substance: INSULIN GLARGINE
     Indication: TYPE 2 DIABETES MELLITUS
     Dosage: 70 UNITS AM/70 UNITS PM DOSE:70 UNIT(S)
     Route: 065
  3. NOVOLOG [Concomitant]
     Active Substance: INSULIN ASPART
     Dosage: SLIDING SCALE

REACTIONS (4)
  - Skin ulcer [Unknown]
  - Memory impairment [Unknown]
  - Disease complication [Unknown]
  - Product use issue [Unknown]

NARRATIVE: CASE EVENT DATE: 201610
